FAERS Safety Report 9491522 (Version 1)
Quarter: 2013Q1

REPORT INFORMATION
  Report Type: Not Available
  Country: US (occurrence: US)
  Receive Date: 20121219
  Receipt Date: 20121219
  Transmission Date: 20140127
  Serious: Yes (Hospitalization, Other)
  Sender: FDA-Public Use
  Company Number: US-LUNDBECK-DKLU1079533

PATIENT
  Age: 13 None
  Sex: Male
  Weight: 62.7 kg

DRUGS (13)
  1. CLOBAZAM [Suspect]
     Indication: LENNOX-GASTAUT SYNDROME
     Route: 048
     Dates: start: 20090313, end: 20090327
  2. CLOBAZAM [Suspect]
     Route: 048
     Dates: start: 20090328, end: 20090331
  3. CLOBAZAM [Suspect]
     Route: 048
     Dates: start: 20090401, end: 20090408
  4. CLOBAZAM [Suspect]
     Route: 048
     Dates: start: 20090409
  5. LAMICTAL [Concomitant]
     Indication: EPILEPSY
     Route: 048
     Dates: start: 20000907
  6. FELBATOL [Concomitant]
     Indication: EPILEPSY
     Route: 048
     Dates: start: 20041122
  7. DIASTAT [Concomitant]
     Indication: CONVULSION
     Route: 050
     Dates: start: 200501
  8. RISPERDAL [Concomitant]
     Indication: ABNORMAL BEHAVIOUR
     Route: 048
     Dates: start: 20081003
  9. TENEX [Concomitant]
     Indication: ABNORMAL BEHAVIOUR
     Route: 048
     Dates: start: 20081117, end: 20090329
  10. TENEX [Concomitant]
     Route: 048
     Dates: start: 20090330
  11. ZITHROMAX [Concomitant]
     Indication: PNEUMONIA
     Route: 048
     Dates: start: 20090329, end: 20090401
  12. UNKNOWN ANTIBIOTIC [Concomitant]
     Indication: PNEUMONIA
     Route: 050
     Dates: start: 20090328, end: 20090328
  13. CLARITIN [Concomitant]
     Indication: HYPERSENSITIVITY
     Route: 048
     Dates: start: 20080813

REACTIONS (2)
  - Aggression [Recovered/Resolved with Sequelae]
  - Pneumonia [Recovered/Resolved]
